FAERS Safety Report 4338855-1 (Version None)
Quarter: 2004Q2

REPORT INFORMATION
  Report Type: 
  Country: None (occurrence: None)
  Receive Date: 20040409
  Receipt Date: 20040402
  Transmission Date: 20050107
  Serious: Yes (Hospitalization, Other)
  Sender: FDA-Public Use
  Company Number: HQ8908828NOV2001

PATIENT
  Age: 72 Year
  Sex: Female
  Weight: 57 kg

DRUGS (7)
  1. ENBREL [Suspect]
     Indication: RHEUMATOID ARTHRITIS
     Dosage: 25 MG 2X PER 1 WK, SUBCUTANEOUS
     Route: 058
     Dates: start: 20010219, end: 20011122
  2. SULFASALAZINE [Suspect]
     Indication: RHEUMATOID ARTHRITIS
     Dosage: 2-3 GRAMS AS PER PROTOCOL, ORAL
     Route: 048
     Dates: start: 20010219, end: 20011122
  3. SULFASALAZINE [Suspect]
     Indication: RHEUMATOID ARTHRITIS
     Dosage: 2-3 GRAMS AS PER PROTOCOL, ORAL
     Route: 048
     Dates: start: 20011218
  4. DICLOFENAC SODIUM [Concomitant]
  5. CALCIUM WITH VITAMIN D (CALCIUM PHOSPHATE/CALCIUM SODIUM LACTATE/ERGOC [Concomitant]
  6. FERRO-RETARD (FERROUS SULFATE) [Concomitant]
  7. VITAMINS NOS (VITAMINS NOS) [Concomitant]

REACTIONS (4)
  - BACTERAEMIA [None]
  - ESCHERICHIA URINARY TRACT INFECTION [None]
  - PANCREATIC ABSCESS [None]
  - RENAL ABSCESS [None]
